FAERS Safety Report 9045371 (Version 1)
Quarter: 2013Q1

REPORT INFORMATION
  Report Type: Report from Study
  Country: US (occurrence: US)
  Receive Date: 20130131
  Receipt Date: 20130131
  Transmission Date: 20140127
  Serious: No
  Sender: FDA-Public Use
  Company Number: US-ABBOTT-12P-163-1002910-00

PATIENT
  Age: 24 None
  Sex: Male

DRUGS (3)
  1. HUMIRA [Suspect]
     Indication: CROHN^S DISEASE
     Route: 058
     Dates: start: 20120914, end: 20120914
  2. HUMIRA [Suspect]
     Route: 058
     Dates: start: 20120929, end: 20120929
  3. HUMIRA [Suspect]
     Route: 058
     Dates: start: 20121013

REACTIONS (5)
  - Wrong technique in drug usage process [Recovered/Resolved]
  - Pain [Recovered/Resolved]
  - Incorrect dose administered [Recovered/Resolved]
  - Device malfunction [Unknown]
  - Drug dose omission [Unknown]
